FAERS Safety Report 8335167-6 (Version None)
Quarter: 2012Q2

REPORT INFORMATION
  Report Type: 
  Country: None (occurrence: None)
  Receive Date: 20120503
  Receipt Date: 20120424
  Transmission Date: 20120825
  Serious: Yes (Hospitalization)
  Sender: FDA-Public Use
  Company Number: US-JNJFOC-20120411625

PATIENT
  Sex: Male
  Weight: 86.18 kg

DRUGS (5)
  1. RISPERDAL [Suspect]
     Route: 048
     Dates: start: 19990101
  2. RISPERDAL CONSTA [Suspect]
     Indication: PRODUCT USED FOR UNKNOWN INDICATION
     Route: 030
     Dates: start: 20120101
  3. INVEGA SUSTENNA [Suspect]
     Indication: PRODUCT USED FOR UNKNOWN INDICATION
     Route: 030
     Dates: end: 20120101
  4. RISPERDAL [Suspect]
     Indication: PRODUCT USED FOR UNKNOWN INDICATION
     Route: 048
     Dates: start: 20120101
  5. RISPERDAL CONSTA [Suspect]
     Route: 030

REACTIONS (4)
  - SELF-INJURIOUS IDEATION [None]
  - WEIGHT INCREASED [None]
  - HOSPITALISATION [None]
  - AKATHISIA [None]
